FAERS Safety Report 8072861-9 (Version None)
Quarter: 2012Q1

REPORT INFORMATION
  Report Type: 
  Country: None (occurrence: None)
  Receive Date: 20120120
  Receipt Date: 20120109
  Transmission Date: 20120608
  Serious: No
  Sender: FDA-Public Use
  Company Number: 2012MA000654

PATIENT
  Age: 42 Year
  Sex: Male

DRUGS (4)
  1. THEBAINE [Suspect]
  2. CODEINE SULFATE [Suspect]
  3. PAREGORIC LIQUID USP (ALPHARMA) [Suspect]
  4. PHENAZEPAM [Suspect]

REACTIONS (9)
  - CARDIOMEGALY [None]
  - RESPIRATORY FAILURE [None]
  - UNRESPONSIVE TO STIMULI [None]
  - ASTHMA [None]
  - TOXICITY TO VARIOUS AGENTS [None]
  - PULMONARY OEDEMA [None]
  - RESPIRATORY DEPRESSION [None]
  - OBESITY [None]
  - BRAIN OEDEMA [None]
